FAERS Safety Report 12170912 (Version 1)
Quarter: 2016Q1

REPORT INFORMATION
  Report Type: Spontaneous
  Country: FR (occurrence: FR)
  Receive Date: 20160311
  Receipt Date: 20160311
  Transmission Date: 20160526
  Serious: Yes (Other)
  Sender: FDA-Public Use
  Company Number: FR-EMD SERONO-8071523

PATIENT
  Age: 36 Year
  Sex: Female

DRUGS (6)
  1. OVITRELLE [Suspect]
     Active Substance: CHORIOGONADOTROPIN ALFA
     Indication: IN VITRO FERTILISATION
     Route: 058
     Dates: start: 20160110, end: 20160110
  2. LEVOTHYROX [Suspect]
     Active Substance: LEVOTHYROXINE
     Indication: HYPOTHYROIDISM
     Route: 048
  3. ASPEGIC [Suspect]
     Active Substance: ASPIRIN DL-LYSINE
     Indication: PROPHYLAXIS
     Route: 048
     Dates: start: 20160114
  4. LUVERIS [Suspect]
     Active Substance: LUTROPIN ALFA
     Indication: IN VITRO FERTILISATION
     Route: 057
     Dates: start: 20160105, end: 20160109
  5. ORGALUTRAN [Suspect]
     Active Substance: GANIRELIX ACETATE
     Indication: IN VITRO FERTILISATION
     Route: 058
     Dates: start: 20160105, end: 20160109
  6. GONAL-F [Suspect]
     Active Substance: FOLLITROPIN
     Indication: IN VITRO FERTILISATION
     Dosage: DOSE: 300 (UNSPECIFIED UNIT) PER DAY
     Route: 058
     Dates: start: 20151231, end: 20160109

REACTIONS (2)
  - Hypothyroidism [Recovered/Resolved]
  - Maternal exposure during pregnancy [Unknown]

NARRATIVE: CASE EVENT DATE: 20160218
